FAERS Safety Report 9358610 (Version 1)
Quarter: 2013Q2

REPORT INFORMATION
  Report Type: Spontaneous
  Country: JP (occurrence: JP)
  Receive Date: 20130620
  Receipt Date: 20130620
  Transmission Date: 20140414
  Serious: Yes (Death, Other)
  Sender: FDA-Public Use
  Company Number: PHHY2013JP061460

PATIENT
  Age: 70 Year
  Sex: Male

DRUGS (5)
  1. TACROLIMUS [Suspect]
     Indication: RENAL TRANSPLANT
     Dosage: 5 MG, UNK
  2. MYCOPHENOLATE MOFETIL [Suspect]
     Indication: RENAL TRANSPLANT
     Dosage: 750 MG, UNK
  3. IRINOTECAN [Suspect]
     Indication: GASTRIC CANCER
     Dosage: 70 MG/M2, UNK
  4. PACLITAXEL [Suspect]
     Indication: GASTRIC CANCER
     Dosage: 1245 MG, FOR 3 WEEKS
  5. PREDNISOLONE [Concomitant]
     Dosage: 5 MG, UNK

REACTIONS (7)
  - Death [Fatal]
  - Bone marrow failure [Unknown]
  - Hypersensitivity [Unknown]
  - Pancytopenia [Unknown]
  - Pneumonia [Unknown]
  - Diarrhoea [Unknown]
  - Blood creatinine increased [Unknown]
